FAERS Safety Report 8896769 (Version 1)
Quarter: 2012Q4

REPORT INFORMATION
  Report Type: 
  Country: US (occurrence: US)
  Receive Date: 20121108
  Receipt Date: 20121108
  Transmission Date: 20130627
  Serious: No
  Sender: FDA-Public Use
  Company Number: US-AMGEN-USASP2012026688

PATIENT
  Age: 62 Year
  Sex: Female

DRUGS (6)
  1. ENBREL [Suspect]
     Indication: PRODUCT USED FOR UNKNOWN INDICATION
     Dosage: 50 mg, qwk
     Route: 058
  2. SYNTHROID [Concomitant]
     Dosage: 100 mug, UNK
  3. VITAMIN E                          /00110501/ [Concomitant]
     Dosage: 400 IU, UNK
  4. PROZAC [Concomitant]
     Dosage: 10 mg, UNK
  5. CALCITRENE [Concomitant]
     Dosage: UNK
  6. PROBIOTIC [Concomitant]
     Dosage: UNK

REACTIONS (4)
  - Fall [Unknown]
  - Head injury [Unknown]
  - Contusion [Unknown]
  - Laceration [Unknown]
